FAERS Safety Report 5769082-9 (Version None)
Quarter: 2008Q2

REPORT INFORMATION
  Report Type: 
  Country: None (occurrence: None)
  Receive Date: 20080612
  Receipt Date: 20080320
  Transmission Date: 20081010
  Serious: No
  Sender: FDA-Public Use
  Company Number: US-ABBOTT-08P-163-0443480-00

PATIENT
  Sex: Female
  Weight: 95 kg

DRUGS (6)
  1. HUMIRA [Suspect]
     Indication: PSORIATIC ARTHROPATHY
     Route: 058
     Dates: start: 20070901
  2. ESOMEPRAZOLE MAGNESIUM [Concomitant]
     Indication: GASTRIC DISORDER
     Route: 048
  3. FEXOFENADINE [Concomitant]
     Indication: SEASONAL ALLERGY
     Route: 048
  4. CELECOXIB [Concomitant]
     Indication: ARTHRITIS
     Route: 048
  5. OLMESARTAN MEDOXOMIL [Concomitant]
     Indication: HYPERTENSION
     Route: 048
  6. ESCITALOPRAM OXALATE [Concomitant]
     Indication: DEPRESSION
     Route: 048

REACTIONS (1)
  - ACCIDENTAL EXPOSURE [None]
